FAERS Safety Report 16047399 (Version 1)
Quarter: 2019Q1

REPORT INFORMATION
  Report Type: Spontaneous
  Country: US (occurrence: US)
  Receive Date: 20190307
  Receipt Date: 20190307
  Transmission Date: 20190418
  Serious: No
  Sender: FDA-Public Use
  Company Number: US-BAYER-2019-046879

PATIENT

DRUGS (1)
  1. BETACONNECT [Suspect]
     Active Substance: DEVICE
     Dosage: UNK

REACTIONS (1)
  - Device use issue [None]
